FAERS Safety Report 9384341 (Version 2)
Quarter: 2014Q1

REPORT INFORMATION
  Report Type: Spontaneous
  Country: JP (occurrence: JP)
  Receive Date: 20130705
  Receipt Date: 20140101
  Transmission Date: 20141002
  Serious: Yes (Death, Hospitalization, Other)
  Sender: FDA-Public Use
  Company Number: PHHY2013JP070008

PATIENT
  Sex: Male

DRUGS (7)
  1. NEORAL [Suspect]
     Indication: NEPHROTIC SYNDROME
  2. NEORAL [Suspect]
     Route: 048
  3. PREDNISOLONE [Suspect]
     Indication: NEPHROTIC SYNDROME
     Dosage: 35 MG PER DAY
  4. METHYLPREDNISOLONE [Suspect]
     Indication: NEPHROTIC SYNDROME
  5. PROGRAF [Suspect]
     Indication: NEPHROTIC SYNDROME
     Route: 048
  6. CELLCEPT [Suspect]
     Indication: NEPHROTIC SYNDROME
     Route: 048
  7. MIZORIBINE [Suspect]
     Indication: NEPHROTIC SYNDROME
     Route: 048

REACTIONS (9)
  - Cardiac failure [Fatal]
  - Pneumocystis jirovecii pneumonia [Fatal]
  - Acute respiratory distress syndrome [Fatal]
  - Pneumonia [Fatal]
  - Respiratory failure [Unknown]
  - Hepatic function abnormal [Unknown]
  - Bone density decreased [Unknown]
  - Nephrotic syndrome [Recovered/Resolved with Sequelae]
  - Disease recurrence [Recovered/Resolved with Sequelae]
